FAERS Safety Report 6248580-8 (Version None)
Quarter: 2009Q2

REPORT INFORMATION
  Report Type: 
  Country: None (occurrence: None)
  Receive Date: 20090624
  Receipt Date: 20090624
  Transmission Date: 20091009
  Serious: Yes (Life-Threatening, Hospitalization)
  Sender: FDA-Public Use
  Company Number: None

PATIENT
  Age: 48 Year
  Sex: Male
  Weight: 99.8 kg

DRUGS (7)
  1. LANTUS [Suspect]
     Indication: DIABETES MELLITUS
     Dosage: 20 UNITS SQ QD
     Route: 058
     Dates: start: 20090428, end: 20090429
  2. HEP [Concomitant]
  3. CLONAZEPAM [Concomitant]
  4. DOCUSATE [Concomitant]
  5. ONDANSETRON [Concomitant]
  6. PROMETHAZINE [Concomitant]
  7. SENNA [Concomitant]

REACTIONS (3)
  - BLOOD GLUCOSE DECREASED [None]
  - KETOACIDOSIS [None]
  - MENTAL STATUS CHANGES [None]
